FAERS Safety Report 9645835 (Version 1)
Quarter: 2013Q4

REPORT INFORMATION
  Report Type: Spontaneous
  Country: US (occurrence: None)
  Receive Date: 20131023
  Receipt Date: 20131023
  Transmission Date: 20140711
  Serious: Yes (Hospitalization)
  Sender: FDA-Public Use
  Company Number: UTC-039345

PATIENT
  Sex: Female
  Weight: 11.04 kg

DRUGS (1)
  1. REMODULIN [Suspect]
     Dosage: 116.64 UG/KG (0.081 UG/KG, 1 IN 1 MIN)
     Route: 058

REACTIONS (1)
  - Infusion site infection [None]
